FAERS Safety Report 8795601 (Version 3)
Quarter: 2012Q4

REPORT INFORMATION
  Report Type: 
  Country: US (occurrence: US)
  Receive Date: 20120919
  Receipt Date: 20121220
  Transmission Date: 20130627
  Serious: Yes (Hospitalization)
  Sender: FDA-Public Use
  Company Number: US-GILEAD-2012-0061359

PATIENT
  Sex: Female

DRUGS (3)
  1. LETAIRIS [Suspect]
     Indication: PULMONARY ARTERIAL HYPERTENSION
     Dosage: 10 mg, UNK
     Route: 048
     Dates: start: 20110606
  2. ADCIRCA [Concomitant]
  3. REMODULIN [Concomitant]

REACTIONS (5)
  - Drug therapy [Unknown]
  - Pain [Unknown]
  - Diarrhoea [Unknown]
  - Flushing [Unknown]
  - Headache [Unknown]
